FAERS Safety Report 4686361-7 (Version None)
Quarter: 2005Q2

REPORT INFORMATION
  Report Type: 
  Country: None (occurrence: None)
  Receive Date: 20050606
  Receipt Date: 20050523
  Transmission Date: 20051028
  Serious: Yes (Hospitalization)
  Sender: FDA-Public Use
  Company Number: 2005078554

PATIENT
  Age: 57 Year
  Sex: Female
  Weight: 131.5431 kg

DRUGS (4)
  1. CELEBREX (CELECOXIBI) [Suspect]
     Indication: ARTHRITIS
     Dosage: 400 MG (200 MG, 2 IN 1 D), ORAL
     Route: 048
     Dates: start: 20010101
  2. MORPHINE [Concomitant]
  3. LIPITOR [Concomitant]
  4. ANTIEPILEPTICS (ANTIEPILEPTICS0 [Concomitant]

REACTIONS (6)
  - DRUG INEFFECTIVE [None]
  - FALL [None]
  - INFLAMMATION [None]
  - JOINT DISLOCATION [None]
  - MEMORY IMPAIRMENT [None]
  - UPPER LIMB FRACTURE [None]
